FAERS Safety Report 23839829 (Version 3)
Quarter: 2024Q3

REPORT INFORMATION
  Report Type: Spontaneous
  Country: US (occurrence: US)
  Receive Date: 20240510
  Receipt Date: 20240731
  Transmission Date: 20241016
  Serious: No
  Sender: LUPIN
  Company Number: US-LUPIN PHARMACEUTICALS INC.-2024-03766

PATIENT

DRUGS (1)
  1. ALBUTEROL SULFATE [Suspect]
     Active Substance: ALBUTEROL SULFATE
     Indication: Chronic obstructive pulmonary disease
     Dosage: UNK, PRN (2 TIMES A DAY AS NEEDED)
     Dates: start: 20240329

REACTIONS (4)
  - Dyspnoea [Unknown]
  - Device deposit issue [Unknown]
  - Drug dose omission by device [Unknown]
  - Device delivery system issue [Unknown]
